FAERS Safety Report 16357027 (Version 1)
Quarter: 2019Q2

REPORT INFORMATION
  Report Type: Spontaneous
  Country: GB (occurrence: GB)
  Receive Date: 20190527
  Receipt Date: 20190527
  Transmission Date: 20190711
  Serious: Yes (Other)
  Sender: FDA-Public Use
  Company Number: GB-SCIEGEN PHARMACEUTICALS INC-2019SCILIT00179

PATIENT
  Age: 65 Year
  Sex: Female

DRUGS (5)
  1. GABAPENTIN TABLETS [Suspect]
     Active Substance: GABAPENTIN
  2. FLUOXETINE [Concomitant]
     Active Substance: FLUOXETINE HYDROCHLORIDE
  3. MORPHINE SULPHATE [Concomitant]
     Active Substance: MORPHINE SULFATE
  4. LORAZEPAM. [Interacting]
     Active Substance: LORAZEPAM
  5. TRAMADOL. [Concomitant]
     Active Substance: TRAMADOL

REACTIONS (1)
  - Withdrawal catatonia [Recovered/Resolved]
